FAERS Safety Report 4377677-2 (Version None)
Quarter: 2004Q2

REPORT INFORMATION
  Report Type: 
  Country: None (occurrence: None)
  Receive Date: 20040615
  Receipt Date: 20040607
  Transmission Date: 20050107
  Serious: Yes (Hospitalization)
  Sender: FDA-Public Use
  Company Number: US-ROCHE-370480

PATIENT
  Age: 53 Year
  Sex: Male
  Weight: 86.3 kg

DRUGS (10)
  1. CELLCEPT [Suspect]
     Route: 065
     Dates: start: 20031205
  2. ARANESP [Suspect]
     Indication: RENAL FAILURE CHRONIC
     Route: 058
     Dates: start: 20030115, end: 20040510
  3. ALLOPURINOL [Concomitant]
     Dates: start: 19850615
  4. SIROLIMUS [Concomitant]
     Dates: end: 20031210
  5. WARFARIN SODIUM [Concomitant]
     Dates: start: 20000515, end: 20040420
  6. ENOXAPARIN SODIUM [Concomitant]
     Dates: start: 20040420
  7. DIGOXIN [Concomitant]
     Dates: start: 20000515
  8. DIATX [Concomitant]
     Dates: start: 20020115
  9. FUROSEMIDE [Concomitant]
     Dates: start: 19850615
  10. PREDNISONE [Concomitant]
     Dates: start: 19850615

REACTIONS (4)
  - BONE MARROW DEPRESSION [None]
  - DRUG INEFFECTIVE [None]
  - FAECAL OCCULT BLOOD [None]
  - HAEMOGLOBIN DECREASED [None]
